FAERS Safety Report 9344739 (Version 2)
Quarter: 2013Q4

REPORT INFORMATION
  Report Type: Spontaneous
  Country: BE (occurrence: BE)
  Receive Date: 20130612
  Receipt Date: 20131031
  Transmission Date: 20140711
  Serious: Yes (Hospitalization)
  Sender: FDA-Public Use
  Company Number: BE-VERTEX PHARMACEUTICALS INC-2013-006988

PATIENT
  Age: 66 Year
  Sex: Male

DRUGS (14)
  1. INCIVO [Suspect]
     Indication: HEPATITIS C
     Dosage: 750 MG, TID
     Route: 048
     Dates: start: 20121125, end: 20130220
  2. PEGINTERFERON ALFA-2A [Suspect]
     Indication: HEPATITIS C
     Dosage: DOSAGE FORM: UNSPECIFIED
     Route: 058
     Dates: start: 20121125, end: 20130306
  3. RIBAVIRIN [Suspect]
     Indication: HEPATITIS C
     Dosage: 600 MG, BID
     Route: 048
     Dates: start: 20121125, end: 20130306
  4. AMLOR [Concomitant]
     Indication: HYPERTENSION
     Dosage: DOSAGE FORM: UNSPECIFIED
     Route: 048
  5. NOVORAPID [Concomitant]
     Indication: DIABETES MELLITUS
     Dosage: UNK, TID
     Route: 058
  6. NOVORAPID [Concomitant]
     Dosage: DOSAGE FORM: UNSPECIFIED
  7. METFORMAX [Concomitant]
     Indication: DIABETES MELLITUS
     Dosage: DOSAGE FORM: UNSPECIFIED
     Route: 048
  8. METFORMAX [Concomitant]
  9. LANTUS [Concomitant]
     Indication: DIABETES MELLITUS
     Dosage: UNK, QD
     Route: 058
  10. LANTUS [Concomitant]
     Dosage: DOSAGE FORM: UNSPECIFIED
  11. COVERSYL [Concomitant]
     Indication: HYPERTENSION
     Dosage: DOSAGE FORM: UNSPECIFIED
     Route: 048
  12. ASAFLOW [Concomitant]
     Dosage: DOSAGE FORM: UNSPECIFIED
     Route: 065
  13. PRAREDUCT [Concomitant]
     Dosage: DOSAGE FORM: UNSPECIFIED
     Route: 065
  14. VITAMIN D [Concomitant]
     Dosage: DOSAGE FORM: UNSPECIFIED
     Route: 065

REACTIONS (5)
  - Hepatic cirrhosis [Recovered/Resolved]
  - Anaemia [Unknown]
  - Leukopenia [Unknown]
  - Helicobacter gastritis [Unknown]
  - Thrombocytopenia [Unknown]
